FAERS Safety Report 8959794 (Version 1)
Quarter: 2012Q4

REPORT INFORMATION
  Report Type: 
  Country: CA (occurrence: CA)
  Receive Date: 20121212
  Receipt Date: 20121212
  Transmission Date: 20130627
  Serious: Yes (Death, Other)
  Sender: FDA-Public Use
  Company Number: PHHY2011CA62204

PATIENT
  Age: 43 Year
  Sex: Female

DRUGS (2)
  1. SANDOSTATIN LAR [Suspect]
     Indication: NEUROENDOCRINE TUMOUR
     Dosage: 20 mg, every 4 weeks
     Route: 030
     Dates: start: 20101001
  2. AFINITOR [Suspect]
     Indication: NEUROENDOCRINE TUMOUR
     Dosage: 10 mg, QD
     Route: 048
     Dates: start: 20110705

REACTIONS (4)
  - Death [Fatal]
  - Hyperglycaemia [Unknown]
  - Malaise [Unknown]
  - Drug ineffective [Unknown]
